FAERS Safety Report 18354173 (Version 1)
Quarter: 2020Q4

REPORT INFORMATION
  Report Type: Report from Study
  Country: None (occurrence: US)
  Receive Date: 20201006
  Receipt Date: 20201006
  Transmission Date: 20210114
  Serious: Yes (Other)
  Sender: FDA-Public Use
  Company Number: US-ABBVIE-20K-163-3506382-00

PATIENT
  Sex: Male
  Weight: 83.54 kg

DRUGS (1)
  1. HUMIRA [Suspect]
     Active Substance: ADALIMUMAB
     Indication: CROHN^S DISEASE
     Dosage: HUMIRA CITRATE-FREE
     Route: 058
     Dates: end: 20200707

REACTIONS (2)
  - Abdominal adhesions [Unknown]
  - Crohn^s disease [Unknown]
